FAERS Safety Report 23007696 (Version 2)
Quarter: 2024Q1

REPORT INFORMATION
  Report Type: Spontaneous
  Country: US (occurrence: US)
  Receive Date: 20230929
  Receipt Date: 20240102
  Transmission Date: 20240410
  Serious: Yes (Death, Other)
  Sender: FDA-Public Use
  Company Number: US-BRISTOL-MYERS SQUIBB COMPANY-2023-138444

PATIENT
  Age: 72 Year
  Sex: Female

DRUGS (9)
  1. OPDIVO [Suspect]
     Active Substance: NIVOLUMAB
     Indication: Uterine cancer
     Dosage: FREQ : EVERY 3 WEEKS
     Route: 042
  2. YERVOY [Suspect]
     Active Substance: IPILIMUMAB
     Indication: Uterine cancer
     Dosage: YERVOY: 2X50MG VIALS IV SOLUTION FOR INFUSION / FREQ : EVERY 3 WEEKS
     Route: 042
  3. FENTANYL [Concomitant]
     Active Substance: FENTANYL\FENTANYL CITRATE
     Indication: Product used for unknown indication
  4. OXYCODONE [Concomitant]
     Active Substance: OXYCODONE
     Indication: Product used for unknown indication
  5. DIAZEPAM [Concomitant]
     Active Substance: DIAZEPAM
     Indication: Product used for unknown indication
  6. LIDOCAINE [Concomitant]
     Active Substance: LIDOCAINE
     Indication: Product used for unknown indication
  7. ATORVASTATIN [Concomitant]
     Active Substance: ATORVASTATIN
     Indication: Product used for unknown indication
  8. BELSOMRA [Concomitant]
     Active Substance: SUVOREXANT
     Indication: Product used for unknown indication
  9. ONDANSETRON [Concomitant]
     Active Substance: ONDANSETRON
     Indication: Product used for unknown indication

REACTIONS (2)
  - Death [Fatal]
  - Off label use [Unknown]

NARRATIVE: CASE EVENT DATE: 20230823
